FAERS Safety Report 19570987 (Version 9)
Quarter: 2022Q1

REPORT INFORMATION
  Report Type: Report from Study
  Country: ES (occurrence: None)
  Receive Date: 20210716
  Receipt Date: 20220128
  Transmission Date: 20220424
  Serious: Yes (Hospitalization)
  Sender: FDA-Public Use
  Company Number: ES-EISAI MEDICAL RESEARCH-EC-2021-096159

PATIENT
  Age: 71 Year
  Sex: Female
  Weight: 77.9 kg

DRUGS (23)
  1. LENVATINIB [Suspect]
     Active Substance: LENVATINIB
     Indication: Non-small cell lung cancer metastatic
     Route: 048
     Dates: start: 20210625, end: 20210705
  2. LENVATINIB [Suspect]
     Active Substance: LENVATINIB
     Route: 048
     Dates: start: 20210726, end: 20211008
  3. LENVATINIB [Suspect]
     Active Substance: LENVATINIB
     Route: 048
     Dates: start: 20211011
  4. PEMBROLIZUMAB [Suspect]
     Active Substance: PEMBROLIZUMAB
     Indication: Non-small cell lung cancer metastatic
     Route: 041
     Dates: start: 20210625, end: 20210625
  5. DIFLUCORTOLONE [Concomitant]
     Active Substance: DIFLUCORTOLONE
     Dates: start: 20210406, end: 20210624
  6. MORPHINE [Concomitant]
     Active Substance: MORPHINE
     Dates: start: 20210406, end: 20210624
  7. ALBUTEROL [Concomitant]
     Active Substance: ALBUTEROL
     Dates: start: 20210406, end: 20210624
  8. SYMBICORT [Concomitant]
     Active Substance: BUDESONIDE\FORMOTEROL FUMARATE DIHYDRATE
     Dates: start: 20210406, end: 20210624
  9. LORAZEPAM [Concomitant]
     Active Substance: LORAZEPAM
     Dates: start: 20210406, end: 20210725
  10. OMEPRAZOLE [Concomitant]
     Active Substance: OMEPRAZOLE
     Dates: start: 20210406
  11. VENLAFAXINE HYDROCHLORIDE [Concomitant]
     Active Substance: VENLAFAXINE HYDROCHLORIDE
     Dates: start: 20210406, end: 20210804
  12. ACETAMINOPHEN [Concomitant]
     Active Substance: ACETAMINOPHEN
     Dates: start: 20210406, end: 20210707
  13. CHOLECALCIFEROL [Concomitant]
     Active Substance: CHOLECALCIFEROL
     Dates: start: 20210406
  14. CALCIUM [Concomitant]
     Active Substance: CALCIUM
     Dates: start: 20210406
  15. MOVICOL [Concomitant]
     Active Substance: POLYETHYLENE GLYCOL 3350\POTASSIUM CHLORIDE\SODIUM BICARBONATE\SODIUM CHLORIDE
     Dates: start: 20210407
  16. MORPHINE SULFATE [Concomitant]
     Active Substance: MORPHINE SULFATE
     Dates: start: 20210518, end: 20210706
  17. PREDNISONE [Concomitant]
     Active Substance: PREDNISONE
     Dates: start: 20210622, end: 20210624
  18. PREDNISONE [Concomitant]
     Active Substance: PREDNISONE
     Dates: start: 20210625, end: 20210630
  19. EBASTINE [Concomitant]
     Active Substance: EBASTINE
     Dates: start: 20210622, end: 20210707
  20. EBASTINE [Concomitant]
     Active Substance: EBASTINE
     Dates: start: 20210625
  21. PRIMPERAN [Concomitant]
     Active Substance: METOCLOPRAMIDE HYDROCHLORIDE
     Dates: start: 20210625, end: 20211117
  22. LEVOTHYROXINE SODIUM [Concomitant]
     Active Substance: LEVOTHYROXINE SODIUM
     Dates: start: 20210608
  23. ENALAPRIL [Concomitant]
     Active Substance: ENALAPRIL
     Dates: start: 20210702, end: 20210815

REACTIONS (1)
  - Encephalopathy [Recovered/Resolved]

NARRATIVE: CASE EVENT DATE: 20210706
